FAERS Safety Report 7010257 (Version 2)
Quarter: 2014Q1

REPORT INFORMATION
  Report Type: Spontaneous
  Country: US (occurrence: None)
  Receive Date: 20090526
  Receipt Date: 20140219
  Transmission Date: 20141002
  Serious: Yes (Other)
  Sender: FDA-Public Use
  Company Number: 2009S1004143

PATIENT
  Age: 72 Year
  Sex: Male
  Weight: 83.92 kg

DRUGS (6)
  1. FLEET PHOSPHO-SODA ORAL SALINE LAXATIVE, GINGER-LEMON FLAVOR (ORAL SOLUTION) [Suspect]
     Indication: COLONOSCOPY
     Dosage: PO
     Route: 048
     Dates: start: 20030918
  2. CARDURA (DOXAZOSIN MESILATE) [Concomitant]
  3. MAXZIDE (HYDROCHOLOROTHIAZIDE , TRIAMTERENE) [Concomitant]
  4. TENEX (GUANFACINE HYDROCHLORIDE) [Concomitant]
  5. ZESTRIL (LISINOPRIL) [Concomitant]
  6. IBUPROFEN (IBUPROFEN) [Concomitant]

REACTIONS (1)
  - Renal impairment [None]
